FAERS Safety Report 8545805-0 (Version None)
Quarter: 2012Q3

REPORT INFORMATION
  Report Type: 
  Country: None (occurrence: None)
  Receive Date: 20120727
  Receipt Date: 20120719
  Transmission Date: 20120928
  Serious: Yes (Other)
  Sender: FDA-Public Use
  Company Number: CN-BAXTER-2012BAX012341

PATIENT
  Sex: Male
  Weight: 50 kg

DRUGS (3)
  1. INSULIN [Suspect]
  2. 5% GLUCOSE AND 0.9% SODIUM CHLORIDE INJECTION [Suspect]
     Indication: FLUID REPLACEMENT
     Route: 041
     Dates: start: 20100926, end: 20100926
  3. POTASSIUM CHLORIDE [Suspect]

REACTIONS (2)
  - ANAPHYLACTOID REACTION [None]
  - IRRITABILITY [None]
